FAERS Safety Report 4348782-1 (Version None)
Quarter: 2004Q1

REPORT INFORMATION
  Report Type: 
  Country: None (occurrence: None)
  Receive Date: 20040325
  Receipt Date: 20040216
  Transmission Date: 20041129
  Serious: No
  Sender: FDA-Public Use
  Company Number: USA040259455

PATIENT
  Age: 58 Year
  Sex: Female
  Weight: 89 kg

DRUGS (11)
  1. FORTEO [Suspect]
     Indication: OSTEOPOROSIS
     Dosage: 20 UG/1 DAY
     Dates: start: 20041109
  2. PREMARIN [Concomitant]
  3. CALCIUM [Concomitant]
  4. ZANTAC [Concomitant]
  5. VERAPAMIL [Concomitant]
  6. LIPITOR [Concomitant]
  7. PROMETRIUM [Concomitant]
  8. METOPROLOL [Concomitant]
  9. DIGOXIN [Concomitant]
  10. ZOLOFT [Concomitant]
  11. AMITRIPTYLINE HCL [Concomitant]

REACTIONS (1)
  - MUSCLE SPASMS [None]
